FAERS Safety Report 7687361-5 (Version None)
Quarter: 2011Q3

REPORT INFORMATION
  Report Type: 
  Country: None (occurrence: None)
  Receive Date: 20110816
  Receipt Date: 20110810
  Transmission Date: 20111222
  Serious: Yes (Other)
  Sender: FDA-Public Use
  Company Number: US-BAYER-2011-071738

PATIENT
  Sex: Female

DRUGS (2)
  1. MAGNEVIST [Suspect]
     Indication: CONVULSION
  2. MAGNEVIST [Suspect]
     Indication: NUCLEAR MAGNETIC RESONANCE IMAGING BRAIN
     Dosage: 1 ML, UNK
     Dates: start: 20110804, end: 20110804

REACTIONS (4)
  - RASH MACULAR [None]
  - INJECTION SITE EXTRAVASATION [None]
  - PRURITUS [None]
  - INJECTION SITE INFLAMMATION [None]
